FAERS Safety Report 9077260 (Version 3)
Quarter: 2013Q3

REPORT INFORMATION
  Report Type: Spontaneous
  Country: US (occurrence: US)
  Receive Date: 20130201
  Receipt Date: 20130701
  Transmission Date: 20140515
  Serious: Yes (Life-Threatening, Hospitalization)
  Sender: FDA-Public Use
  Company Number: US-BAYER-2013-011321

PATIENT
  Age: 43 Year
  Sex: Female
  Weight: 65.76 kg

DRUGS (6)
  1. YAZ [Suspect]
     Dosage: UNK
     Dates: start: 200308, end: 201210
  2. YASMIN [Suspect]
     Dosage: UNK
     Dates: start: 200308, end: 201210
  3. LEXAPRO [Concomitant]
     Dosage: UNK
     Dates: start: 2007
  4. WELLBUTRIN [Concomitant]
     Dosage: UNK
     Dates: start: 2007
  5. CHANTIX [Concomitant]
     Indication: EX-TOBACCO USER
  6. ATORVASTATIN [Concomitant]

REACTIONS (11)
  - Cerebrovascular accident [None]
  - Injury [None]
  - Pain [None]
  - General physical health deterioration [None]
  - Anxiety [None]
  - Anhedonia [None]
  - Emotional distress [None]
  - Pain [None]
  - Monoparesis [None]
  - VIIth nerve paralysis [None]
  - Hypoaesthesia [None]
